FAERS Safety Report 19661213 (Version 1)
Quarter: 2021Q3

REPORT INFORMATION
  Report Type: Spontaneous
  Country: MX (occurrence: MX)
  Receive Date: 20210720
  Receipt Date: 20210720
  Transmission Date: 20211014
  Serious: Yes (Other)
  Sender: FDA-Public Use
  Company Number: None

PATIENT
  Age: 58 Year
  Sex: Female
  Weight: 57 kg

DRUGS (2)
  1. ESOMEPRAZOL [Concomitant]
     Active Substance: ESOMEPRAZOLE
  2. HEMATOLOGO (FERRIC CARBOXYMALTOSE INJECTION) [Suspect]
     Active Substance: FERRIC CARBOXYMALTOSE

REACTIONS (2)
  - Fatigue [None]
  - Loss of personal independence in daily activities [None]

NARRATIVE: CASE EVENT DATE: 20210702
